FAERS Safety Report 14619241 (Version 2)
Quarter: 2018Q2

REPORT INFORMATION
  Report Type: Spontaneous
  Country: FR (occurrence: FR)
  Receive Date: 20180309
  Receipt Date: 20180406
  Transmission Date: 20180711
  Serious: Yes (Other)
  Sender: FDA-Public Use
  Company Number: FR-JNJFOC-20180306403

PATIENT
  Age: 21 Year
  Sex: Female

DRUGS (14)
  1. UROMITEXAN [Suspect]
     Active Substance: MESNA
     Indication: EWING^S SARCOMA
     Dosage: FOURTH COURSE, TWO WEEKS LATER DELIVERY
     Route: 042
  2. GRANISETRON [Suspect]
     Active Substance: GRANISETRON
     Indication: NAUSEA
     Route: 042
  3. DOXORUBICIN HYDROCHLORIDE. [Suspect]
     Active Substance: DOXORUBICIN HYDROCHLORIDE
     Indication: EWING^S SARCOMA
     Dosage: FOURTH COURSE, TWO WEEKS LATER DELIVERY
     Route: 042
  4. HOLOXAN [Suspect]
     Active Substance: IFOSFAMIDE
     Indication: EWING^S SARCOMA
     Dosage: (ADR-IFX), FOURTH COURSE, TWO WEEKS LATER DELIVERY
     Route: 042
  5. GRANISETRON [Suspect]
     Active Substance: GRANISETRON
     Indication: VOMITING
     Route: 042
  6. G-CSF [Concomitant]
     Active Substance: GRANULOCYTE COLONY-STIMULATING FACTOR NOS
     Indication: PROPHYLAXIS
     Route: 065
  7. HOLOXAN [Suspect]
     Active Substance: IFOSFAMIDE
     Indication: EWING^S SARCOMA
     Dosage: OVER THREE DAYS
     Route: 042
  8. DOXORUBICIN HYDROCHLORIDE. [Suspect]
     Active Substance: DOXORUBICIN HYDROCHLORIDE
     Indication: EWING^S SARCOMA
     Dosage: 3 COURSE OF THREE WEEKLY IN THE 27TH,30TH AND 33RD WEEK OF GESTATION.
     Route: 042
  9. DOXORUBICIN HYDROCHLORIDE. [Suspect]
     Active Substance: DOXORUBICIN HYDROCHLORIDE
     Indication: EWING^S SARCOMA
     Dosage: FOURTH COURSE, TWO WEEKS LATER DELIVERY
     Route: 042
  10. HOLOXAN [Suspect]
     Active Substance: IFOSFAMIDE
     Indication: EWING^S SARCOMA
     Dosage: (ADR-IFX), 3 COURSES OF THREE WEEKLY IN THE 27TH, 30TH, AND 33RD WEEK OF GESTATION
     Route: 042
  11. UROMITEXAN [Suspect]
     Active Substance: MESNA
     Indication: EWING^S SARCOMA
     Dosage: 3 COURSES OF THREE WEEKLY IN THE 27TH, 30TH, AND 33RD WEEK OF GESTATION
     Route: 042
  12. ETOPOSIDE. [Concomitant]
     Active Substance: ETOPOSIDE
     Indication: EWING^S SARCOMA
     Route: 042
  13. DOXORUBICIN HYDROCHLORIDE. [Suspect]
     Active Substance: DOXORUBICIN HYDROCHLORIDE
     Indication: EWING^S SARCOMA
     Dosage: 3 COURSE OF THREE WEEKLY IN THE 27TH,30TH AND 33RD WEEK OF GESTATION.
     Route: 042
  14. MORPHINE [Suspect]
     Active Substance: MORPHINE
     Indication: PREMEDICATION
     Route: 048

REACTIONS (5)
  - Product use in unapproved indication [Unknown]
  - Neutropenia [Unknown]
  - Off label use [Unknown]
  - Febrile neutropenia [Unknown]
  - Exposure during pregnancy [Unknown]
